FAERS Safety Report 22072787 (Version 1)
Quarter: 2023Q1

REPORT INFORMATION
  Report Type: Spontaneous
  Country: CA (occurrence: None)
  Receive Date: 20230308
  Receipt Date: 20230308
  Transmission Date: 20230417
  Serious: Yes (Hospitalization)
  Sender: FDA-Public Use
  Company Number: CA-ROCHE-3296082

PATIENT
  Age: 54 Year

DRUGS (1)
  1. OCREVUS [Suspect]
     Active Substance: OCRELIZUMAB
     Indication: Product used for unknown indication
     Dosage: LAST DOSES WERE DEC/2022.
     Route: 065
     Dates: start: 2018

REACTIONS (2)
  - Pyrexia [Unknown]
  - Sepsis [Unknown]
